FAERS Safety Report 7776193-5 (Version None)
Quarter: 2011Q3

REPORT INFORMATION
  Report Type: 
  Country: None (occurrence: None)
  Receive Date: 20110921
  Receipt Date: 20110913
  Transmission Date: 20111222
  Serious: Yes (Other)
  Sender: FDA-Public Use
  Company Number: 2011SP043415

PATIENT
  Age: 33 Year
  Sex: Female

DRUGS (1)
  1. IMPLANON [Suspect]
     Indication: PRODUCT USED FOR UNKNOWN INDICATION
     Dates: start: 20080701

REACTIONS (2)
  - VAGINAL HAEMORRHAGE [None]
  - UTERINE POLYP [None]
